FAERS Safety Report 25178025 (Version 1)
Quarter: 2025Q2

REPORT INFORMATION
  Report Type: Report from Study
  Country: PL (occurrence: PL)
  Receive Date: 20250409
  Receipt Date: 20250409
  Transmission Date: 20250716
  Serious: Yes (Other)
  Sender: GENMAB
  Company Number: PL-ABBVIE-6208026

PATIENT
  Age: 60 Year
  Sex: Male

DRUGS (2)
  1. EPCORITAMAB [Suspect]
     Active Substance: EPCORITAMAB
     Indication: Diffuse large B-cell lymphoma
     Route: 058
     Dates: start: 2025
  2. EPCORITAMAB [Suspect]
     Active Substance: EPCORITAMAB
     Route: 058
     Dates: start: 20250327

REACTIONS (5)
  - Dysgraphia [Unknown]
  - Confusional state [Unknown]
  - Immune effector cell-associated neurotoxicity syndrome [Unknown]
  - Hypoxia [Unknown]
  - Pyrexia [Unknown]

NARRATIVE: CASE EVENT DATE: 20250327
